FAERS Safety Report 7501008-X (Version None)
Quarter: 2011Q2

REPORT INFORMATION
  Report Type: 
  Country: None (occurrence: None)
  Receive Date: 20110524
  Receipt Date: 20100519
  Transmission Date: 20111010
  Serious: No
  Sender: FDA-Public Use
  Company Number: US-NOVEN-ALL1-2010-02935

PATIENT

DRUGS (4)
  1. DAYTRANA [Suspect]
     Dosage: 20 MG, 1X/DAY:QD
     Route: 062
     Dates: start: 20090101, end: 20090101
  2. SEROQUEL [Concomitant]
     Dosage: 50 MG, 1X/DAY:QD (TWO 25 MG. TABLETS)
     Route: 048
     Dates: start: 20090101
  3. DAYTRANA [Suspect]
     Dosage: 30 MG, 1X/DAY:QD
     Route: 062
     Dates: start: 20090101, end: 20100518
  4. DAYTRANA [Suspect]
     Dosage: 40 MG, 1X/DAY:QD (TWO 20 MG. PATCHES DAILY)
     Route: 062
     Dates: start: 20100519

REACTIONS (3)
  - NO ADVERSE EVENT [None]
  - OVERDOSE [None]
  - PRODUCT QUALITY ISSUE [None]
